FAERS Safety Report 5303176-7 (Version None)
Quarter: 2007Q2

REPORT INFORMATION
  Report Type: 
  Country: None (occurrence: None)
  Receive Date: 20070420
  Receipt Date: 20070411
  Transmission Date: 20071010
  Serious: Yes (Life-Threatening, Hospitalization)
  Sender: FDA-Public Use
  Company Number: US-GENENTECH-225611

PATIENT
  Sex: Female
  Weight: 71.2 kg

DRUGS (9)
  1. BEVACIZUMAB [Suspect]
     Indication: COLON CANCER
     Dosage: 357 MG, Q2W
     Route: 042
     Dates: start: 20051130, end: 20060518
  2. OXALIPLATIN [Suspect]
     Indication: COLON CANCER
     Dosage: 134 MG, Q2W
     Route: 042
     Dates: start: 20051130, end: 20060518
  3. FLUOROURACIL [Suspect]
     Indication: COLON CANCER
     Dosage: 537 MG, Q2W
     Route: 042
     Dates: start: 20051130, end: 20060518
  4. LEUCOVORIN CALCIUM [Suspect]
     Indication: COLON CANCER
     Dosage: 358 MG, Q2W
     Route: 042
     Dates: start: 20051130, end: 20060518
  5. PREMARIN [Concomitant]
     Indication: DRUG USE FOR UNKNOWN INDICATION
     Dates: start: 19950615
  6. ATENOLOL [Concomitant]
     Indication: DRUG USE FOR UNKNOWN INDICATION
  7. LISINOPRIL [Concomitant]
     Indication: DRUG USE FOR UNKNOWN INDICATION
     Dates: start: 20041115, end: 20060508
  8. ADVIL [Concomitant]
     Indication: DRUG USE FOR UNKNOWN INDICATION
     Dates: start: 19850615
  9. UNSPECIFIED DRUG [Concomitant]
     Indication: DRUG USE FOR UNKNOWN INDICATION
     Dates: start: 20041115

REACTIONS (1)
  - RENAL FAILURE ACUTE [None]
